FAERS Safety Report 7888376-4 (Version None)
Quarter: 2011Q4

REPORT INFORMATION
  Report Type: 
  Country: None (occurrence: None)
  Receive Date: 20111103
  Receipt Date: 20111101
  Transmission Date: 20120403
  Serious: Yes (Other)
  Sender: FDA-Public Use
  Company Number: SE-PFIZER INC-2011266732

PATIENT
  Sex: Female

DRUGS (1)
  1. LYRICA [Suspect]
     Indication: GENERALISED ANXIETY DISORDER
     Dosage: UNK
     Dates: end: 20101211

REACTIONS (6)
  - BEDRIDDEN [None]
  - DRUG WITHDRAWAL SYNDROME [None]
  - GASTRITIS [None]
  - DIARRHOEA [None]
  - IRRITABLE BOWEL SYNDROME [None]
  - VOMITING [None]
